FAERS Safety Report 10088878 (Version 2)
Quarter: 2014Q2

REPORT INFORMATION
  Report Type: Spontaneous
  Country: US (occurrence: US)
  Receive Date: 20140421
  Receipt Date: 20140502
  Transmission Date: 20141212
  Serious: Yes (Hospitalization)
  Sender: FDA-Public Use
  Company Number: US-CELGENEUS-163-20785-14042104

PATIENT
  Sex: Female

DRUGS (5)
  1. THALOMID [Suspect]
     Indication: PLASMA CELL MYELOMA
     Dosage: 100 MILLIGRAM
     Route: 048
     Dates: start: 201103
  2. THALOMID [Suspect]
     Dosage: 250 MILLIGRAM
     Route: 048
     Dates: start: 201106
  3. THALOMID [Suspect]
     Dosage: 250 MILLIGRAM
     Route: 048
     Dates: start: 201207
  4. THALOMID [Suspect]
     Dosage: 50 - 250MG
     Route: 048
     Dates: start: 201308
  5. THALOMID [Suspect]
     Dosage: 50 MILLIGRAM
     Route: 048
     Dates: start: 201401

REACTIONS (1)
  - Lung infiltration [Unknown]
